FAERS Safety Report 5533537-2 (Version None)
Quarter: 2007Q4

REPORT INFORMATION
  Report Type: 
  Country: None (occurrence: None)
  Receive Date: 20071204
  Receipt Date: 20071128
  Transmission Date: 20080405
  Serious: Yes (Other)
  Sender: FDA-Public Use
  Company Number: GB-PFIZER INC-2007100810

PATIENT
  Age: 67 Year
  Sex: Female
  Weight: 61.5 kg

DRUGS (8)
  1. CHAMPIX [Suspect]
     Indication: SMOKING CESSATION THERAPY
     Route: 048
     Dates: start: 20070824, end: 20071026
  2. AMITRIPTLINE HCL [Concomitant]
     Indication: OSTEOARTHRITIS
     Route: 048
  3. BENDROFLUAZIDE [Concomitant]
     Indication: HYPERTENSION
     Route: 048
  4. CO-MAGALDROX [Concomitant]
     Indication: DYSPEPSIA
     Route: 048
  5. DIHYDROCODEINE [Concomitant]
     Route: 048
  6. HYDROXOCOBALAMIN [Concomitant]
     Indication: VITAMIN B12 DEFICIENCY
     Route: 030
  7. PARACETAMOL [Concomitant]
     Indication: OSTEOARTHRITIS
     Dosage: TEXT:1 G FOUR TIMES DAILY
     Route: 048
  8. ALBUTEROL [Concomitant]
     Indication: ASTHMA
     Dosage: TEXT:2 DOSAGE FORMS AS NECESSARY
     Route: 055

REACTIONS (4)
  - DRY MOUTH [None]
  - OEDEMA MOUTH [None]
  - PALPITATIONS [None]
  - SWOLLEN TONGUE [None]
